FAERS Safety Report 8512681-1 (Version None)
Quarter: 2012Q3

REPORT INFORMATION
  Report Type: 
  Country: None (occurrence: None)
  Receive Date: 20120716
  Receipt Date: 20120710
  Transmission Date: 20120928
  Serious: Yes (Hospitalization, Other)
  Sender: FDA-Public Use
  Company Number: US-PFIZER INC-2012096561

PATIENT
  Sex: Female
  Weight: 64.399 kg

DRUGS (33)
  1. CORGARD [Concomitant]
     Dosage: 20 MG, 1X/DAY
     Dates: start: 20120126
  2. HUMIRA [Concomitant]
     Dosage: 40 MG/0.8 ML SUBQ KIT, 1 Q1WK
     Dates: start: 20120126
  3. PREDNISONE [Concomitant]
     Dosage: 20 MG, ONE TAB BID FOR 3 DAYS
  4. DEXILANT [Concomitant]
     Dosage: 60 MG, 1 DAILY
     Dates: start: 20120126
  5. MAXALT [Concomitant]
     Dosage: 10 MG, AS NEEDED
  6. HUMIRA [Concomitant]
     Dosage: 40 MG, UNK
  7. FLUDROCORTISONE [Concomitant]
     Dosage: 0.1 MG, 2X/DAY
     Dates: start: 20120126
  8. LYRICA [Suspect]
     Indication: NEURALGIA
     Dosage: 75 MG, 2X/DAY
     Dates: start: 20120321
  9. TRILIPIX [Concomitant]
     Dosage: 135 MG, 1 DAILY
     Dates: start: 20120126
  10. APRISO [Concomitant]
     Dosage: 0.375 G, 2X/DAY, (24HR CAP)
     Dates: start: 20120126
  11. LASIX [Concomitant]
     Dosage: 40 MG, 1 DAILY
     Dates: start: 20120126
  12. MAXALT-MLT [Concomitant]
     Dosage: 10 MG, RAPID DISSOLVE, 3X/DAY AS NEEDED
     Dates: start: 20120126
  13. PROCHLORPERAZINE [Concomitant]
     Dosage: 10 MG, 3X/DAY
     Dates: start: 20120126
  14. LIDODERM [Concomitant]
     Dosage: 5 %, (700 MG/PATCH), 1 DAILY
     Dates: start: 20120126
  15. PREDNISONE [Concomitant]
     Dosage: 20 MG, THREE TABS, BID FOR THREE DAYS
     Dates: start: 20120126
  16. OMEPRAZOLE [Concomitant]
     Dosage: 40 MG, DELAYED RELEASE, 2X/DAY
     Dates: start: 20120126
  17. BACLOFEN [Concomitant]
     Dosage: 10 MG, 3X/DAY
     Dates: start: 20120126
  18. PREDNISONE [Concomitant]
     Dosage: ONE TAB BID THREE DAYS
  19. PROVENTIL-HFA [Concomitant]
     Dosage: 90 UG, ACTUATION AEROSOL INHALER, 2X/DAY
     Route: 055
     Dates: start: 20120126
  20. LIPITOR [Suspect]
     Indication: BLOOD CHOLESTEROL INCREASED
     Dosage: 20 MG, 1X/DAY
     Route: 048
     Dates: start: 20120126, end: 20120401
  21. ADVAIR DISKUS 100/50 [Concomitant]
     Dosage: 250/250 MEG PER DOSE, 2X/DAY
  22. ADVAIR DISKUS 100/50 [Concomitant]
     Dosage: 250 MCG/50 MCG/DOSE FOR INHALATION, 1 BID
     Route: 055
     Dates: start: 20120126
  23. PREDNISONE [Concomitant]
     Dosage: 20 MG, TWO TABS, BID FOR THREE DAYS
  24. EXCEDRIN EXTRA STRENGTH TABLETS [Concomitant]
     Dosage: 250 MG-250MG-65MG TAB, AS NEEDED
     Dates: start: 20120126
  25. SYNTHROID [Concomitant]
     Dosage: 0.05 MG, 1X/DAY
  26. SYNTHROID [Concomitant]
     Dosage: 50 UG, 1 DAILY
     Dates: start: 20120126
  27. KLOR-CON [Concomitant]
     Dosage: 10 MEQ OF 2 PILLS TWICE A DAY AND 3 PILLS TWICE A DAY, ALTERNATING
     Dates: start: 20120126
  28. APRISO [Concomitant]
     Dosage: 0.650 MG (TWO TABLETS OF 0.325MG), 1X/DAY
  29. LASIX [Concomitant]
     Dosage: 40 MG, 1X/DAY
  30. FLEXERIL [Concomitant]
     Dosage: 10 MG, 3X/DAY
     Dates: start: 20120126
  31. PREDNISONE [Concomitant]
     Dosage: THREE TABS. BID FOR THREE DAYS
     Dates: start: 20120229
  32. PREDNISONE [Concomitant]
     Dosage: TWO TABS BID THREE DAYS
  33. PROCTOZONE HC [Concomitant]
     Dosage: 2.5 %, 1 AS DIRECTED
     Dates: start: 20120126

REACTIONS (23)
  - ABDOMINAL PAIN UPPER [None]
  - HEPATOSPLENOMEGALY [None]
  - MUSCULAR WEAKNESS [None]
  - OEDEMA PERIPHERAL [None]
  - MUSCLE SPASMS [None]
  - CLOSTRIDIUM DIFFICILE COLITIS [None]
  - DECREASED APPETITE [None]
  - BACK DISORDER [None]
  - PAIN IN EXTREMITY [None]
  - ARTHRALGIA [None]
  - JOINT STIFFNESS [None]
  - DYSPEPSIA [None]
  - DIARRHOEA [None]
  - MUSCLE ATROPHY [None]
  - MUSCLE DISORDER [None]
  - ABDOMINAL PAIN [None]
  - PAIN [None]
  - MYALGIA [None]
  - NAUSEA [None]
  - MUSCULOSKELETAL STIFFNESS [None]
  - ASTHENIA [None]
  - HYPERSENSITIVITY [None]
  - ARTHRITIS [None]
